FAERS Safety Report 7293217-2 (Version None)
Quarter: 2011Q1

REPORT INFORMATION
  Report Type: 
  Country: None (occurrence: None)
  Receive Date: 20110215
  Receipt Date: 20110209
  Transmission Date: 20110831
  Serious: Yes (Other)
  Sender: FDA-Public Use
  Company Number: US-PFIZER INC-2010176161

PATIENT
  Sex: Male
  Weight: 107 kg

DRUGS (2)
  1. LOPRESSOR [Concomitant]
     Indication: CARDIAC DISORDER
     Dosage: UNK
  2. XALATAN [Suspect]
     Indication: OPEN ANGLE GLAUCOMA
     Dosage: ONE DROP IN EACH EYE AT BEDTIME

REACTIONS (1)
  - INTRAOCULAR PRESSURE INCREASED [None]
